FAERS Safety Report 14943495 (Version 2)
Quarter: 2018Q2

REPORT INFORMATION
  Report Type: Spontaneous
  Country: ES (occurrence: ES)
  Receive Date: 20180528
  Receipt Date: 20180604
  Transmission Date: 20180711
  Serious: Yes (Other)
  Sender: FDA-Public Use
  Company Number: ES-UCBSA-2018023177

PATIENT
  Age: 31 Year
  Sex: Female

DRUGS (13)
  1. ADALIMUMAB [Suspect]
     Active Substance: ADALIMUMAB
     Indication: PSORIATIC ARTHROPATHY
  2. ETANERCEPT [Suspect]
     Active Substance: ETANERCEPT
     Indication: IRIDOCYCLITIS
     Dosage: UNK
  3. ADALIMUMAB [Suspect]
     Active Substance: ADALIMUMAB
     Indication: DISEASE RECURRENCE
  4. ETANERCEPT [Suspect]
     Active Substance: ETANERCEPT
     Indication: PSORIATIC ARTHROPATHY
  5. METHOTREXATE. [Suspect]
     Active Substance: METHOTREXATE
     Indication: PSORIATIC ARTHROPATHY
  6. CERTOLIZUMAB PEGOL [Suspect]
     Active Substance: CERTOLIZUMAB PEGOL
     Indication: DISEASE RECURRENCE
  7. CERTOLIZUMAB PEGOL [Suspect]
     Active Substance: CERTOLIZUMAB PEGOL
     Indication: OFF LABEL USE
  8. ADALIMUMAB [Suspect]
     Active Substance: ADALIMUMAB
     Indication: IRIDOCYCLITIS
     Dosage: UNK
  9. ETANERCEPT [Suspect]
     Active Substance: ETANERCEPT
     Indication: DISEASE RECURRENCE
  10. METHOTREXATE. [Suspect]
     Active Substance: METHOTREXATE
     Indication: IRIDOCYCLITIS
     Dosage: UNKNOWN DOSE
  11. METHOTREXATE. [Suspect]
     Active Substance: METHOTREXATE
     Indication: DISEASE RECURRENCE
  12. CERTOLIZUMAB PEGOL [Suspect]
     Active Substance: CERTOLIZUMAB PEGOL
     Indication: IRIDOCYCLITIS
     Dosage: UNK
  13. CERTOLIZUMAB PEGOL [Suspect]
     Active Substance: CERTOLIZUMAB PEGOL
     Indication: PSORIATIC ARTHROPATHY

REACTIONS (2)
  - Off label use [Unknown]
  - Drug resistance [Unknown]
